FAERS Safety Report 5405507-6 (Version None)
Quarter: 2007Q3

REPORT INFORMATION
  Report Type: 
  Country: None (occurrence: None)
  Receive Date: 20070803
  Receipt Date: 20070723
  Transmission Date: 20080115
  Serious: Yes (Other)
  Sender: FDA-Public Use
  Company Number: US-PFIZER INC-2007061080

PATIENT
  Sex: Male

DRUGS (4)
  1. DEPO-MEDROL [Suspect]
  2. VALIUM [Concomitant]
  3. MORPHINE [Concomitant]
  4. METHADONE HCL [Concomitant]

REACTIONS (7)
  - ADRENAL INSUFFICIENCY [None]
  - HEPATIC ENZYME INCREASED [None]
  - HEPATOMEGALY [None]
  - IMMUNE SYSTEM DISORDER [None]
  - MOOD SWINGS [None]
  - MUSCLE SPASMS [None]
  - VIRAL LOAD INCREASED [None]
